FAERS Safety Report 10100711 (Version 1)
Quarter: 2014Q2

REPORT INFORMATION
  Report Type: Spontaneous
  Country: US (occurrence: US)
  Receive Date: 20140423
  Receipt Date: 20140423
  Transmission Date: 20141212
  Serious: Yes (Hospitalization, Other)
  Sender: FDA-Public Use
  Company Number: US-WATSON-2014-08358

PATIENT
  Age: 70 Year
  Sex: Female

DRUGS (1)
  1. METHYLPREDNISOLONE ACETATE (WATSON LABORATORIES) [Suspect]
     Indication: PRODUCT USED FOR UNKNOWN INDICATION
     Dosage: UNKNOWN
     Route: 008

REACTIONS (3)
  - Meningitis fungal [Recovering/Resolving]
  - Ischaemic stroke [None]
  - Transmission of an infectious agent via product [Unknown]
